FAERS Safety Report 5309869-X (Version None)
Quarter: 2007Q2

REPORT INFORMATION
  Report Type: 
  Country: None (occurrence: None)
  Receive Date: 20070427
  Receipt Date: 20070417
  Transmission Date: 20071010
  Serious: Yes (Other)
  Sender: FDA-Public Use
  Company Number: JP-ROCHE-490838

PATIENT
  Age: 69 Year
  Sex: Female
  Weight: 63 kg

DRUGS (5)
  1. TAMIFLU [Suspect]
     Route: 048
     Dates: start: 20070318, end: 20070319
  2. ASTOMIN [Concomitant]
     Route: 048
     Dates: start: 20070318, end: 20070319
  3. MUCODYNE [Concomitant]
     Route: 048
     Dates: start: 20070318, end: 20070319
  4. MARZULENE-S [Concomitant]
     Dosage: DOSE FORM REPORTED AS GRANULE.
     Route: 048
     Dates: start: 20070318, end: 20070319
  5. CALONAL [Concomitant]
     Route: 048
     Dates: start: 20070318, end: 20070319

REACTIONS (1)
  - LOSS OF CONSCIOUSNESS [None]
